FAERS Safety Report 5538365-X (Version None)
Quarter: 2007Q4

REPORT INFORMATION
  Report Type: 
  Country: None (occurrence: None)
  Receive Date: 20071205
  Receipt Date: 20071130
  Transmission Date: 20080405
  Serious: Yes (Other)
  Sender: FDA-Public Use
  Company Number: 007980

PATIENT
  Age: 40 Year
  Sex: Female

DRUGS (3)
  1. CLARAVIS [Suspect]
     Dosage: 30 MG, BID, ORAL, 20 MG, ORAL, 40 MG, ORAL
     Route: 048
     Dates: start: 20060508, end: 20070613
  2. CLARAVIS [Suspect]
     Dosage: 30 MG, BID, ORAL, 20 MG, ORAL, 40 MG, ORAL
     Route: 048
     Dates: start: 20060614
  3. CLARAVIS [Suspect]
     Dosage: 30 MG, BID, ORAL, 20 MG, ORAL, 40 MG, ORAL
     Route: 048
     Dates: start: 20060614

REACTIONS (4)
  - DRUG DISPENSING ERROR [None]
  - DRUG EXPOSURE DURING PREGNANCY [None]
  - TREATMENT NONCOMPLIANCE [None]
  - UNINTENDED PREGNANCY [None]
